FAERS Safety Report 8153527-3 (Version None)
Quarter: 2012Q1

REPORT INFORMATION
  Report Type: 
  Country: None (occurrence: None)
  Receive Date: 20120221
  Receipt Date: 20120214
  Transmission Date: 20120608
  Serious: No
  Sender: FDA-Public Use
  Company Number: US-PFIZER INC-2012002447

PATIENT

DRUGS (1)
  1. POTASSIUM PENICILLIN G [Suspect]
     Indication: SINUSITIS
     Dosage: UNK

REACTIONS (3)
  - PRURITUS [None]
  - DRUG HYPERSENSITIVITY [None]
  - RASH [None]
